FAERS Safety Report 18469305 (Version 1)
Quarter: 2020Q4

REPORT INFORMATION
  Report Type: Spontaneous
  Country: GB (occurrence: GB)
  Receive Date: 20201105
  Receipt Date: 20201105
  Transmission Date: 20210114
  Serious: Yes (Hospitalization)
  Sender: FDA-Public Use
  Company Number: GB-MYLANLABS-2020M1092576

PATIENT
  Age: 72 Year
  Sex: Male
  Weight: 92 kg

DRUGS (2)
  1. SIMVASTATIN. [Suspect]
     Active Substance: SIMVASTATIN
     Indication: BLOOD CHOLESTEROL INCREASED
     Dosage: 40 MILLIGRAM, QD (AT NIGHT)
     Route: 048
     Dates: end: 20200927
  2. FUSIDIC ACID [Suspect]
     Active Substance: FUSIDIC ACID
     Indication: WOUND INFECTION
     Dosage: 1500 MILLIGRAM, QD
     Route: 048
     Dates: start: 20200828, end: 20200927

REACTIONS (4)
  - Liver function test abnormal [Unknown]
  - Lethargy [Unknown]
  - Rhabdomyolysis [Not Recovered/Not Resolved]
  - Abdominal pain [Unknown]
